FAERS Safety Report 6086900-8 (Version None)
Quarter: 2009Q1

REPORT INFORMATION
  Report Type: 
  Country: None (occurrence: None)
  Receive Date: 20090219
  Receipt Date: 20090206
  Transmission Date: 20090719
  Serious: Yes (Hospitalization, Other)
  Sender: FDA-Public Use
  Company Number: CHPA2009US04184

PATIENT
  Age: 47 Year
  Sex: Female

DRUGS (3)
  1. PRIVATE LABEL (NCH) (NICOTINE) TRAN-THERAPEUTIC-SYSTEM [Suspect]
     Indication: SMOKING CESSATION THERAPY
     Dosage: 21 MG, QD, TRANSDERMAL
     Route: 062
     Dates: start: 20080101, end: 20080101
  2. XANAX [Concomitant]
  3. PERCOCET [Concomitant]

REACTIONS (4)
  - CERVICAL VERTEBRAL FRACTURE [None]
  - INAPPROPRIATE SCHEDULE OF DRUG ADMINISTRATION [None]
  - PNEUMONIA [None]
  - SPINAL FRACTURE [None]
